FAERS Safety Report 7377259-4 (Version None)
Quarter: 2011Q1

REPORT INFORMATION
  Report Type: 
  Country: None (occurrence: None)
  Receive Date: 20110315
  Receipt Date: 20110228
  Transmission Date: 20110831
  Serious: Yes (Hospitalization)
  Sender: FDA-Public Use
  Company Number: 2011S1000244

PATIENT
  Age: 76 Year
  Sex: Female
  Weight: 74 kg

DRUGS (4)
  1. LISINOPRIL [Suspect]
     Dates: end: 20110118
  2. LIVALO [Suspect]
     Dosage: 4 MG, PO
     Route: 048
     Dates: start: 20110107, end: 20110118
  3. HYDROCHLOROTHIAZIDE [Concomitant]
  4. AMIODARONE [Concomitant]

REACTIONS (2)
  - SWELLING FACE [None]
  - JOINT SWELLING [None]
